FAERS Safety Report 5096843-4 (Version None)
Quarter: 2006Q3

REPORT INFORMATION
  Report Type: 
  Country: None (occurrence: None)
  Receive Date: 20060901
  Receipt Date: 20060901
  Transmission Date: 20061208
  Serious: Yes (Life-Threatening, Disabling, Other)
  Sender: FDA-Public Use
  Company Number: None

PATIENT
  Sex: Female
  Weight: 58.0604 kg

DRUGS (1)
  1. FLEETS PHOSPHADOA- BOTTLES NOT AVAILABLE [Suspect]
     Indication: COLONOSCOPY
     Dosage: 2 BOTTLES/24 HRS PO
     Route: 048
     Dates: start: 20051001

REACTIONS (6)
  - BIOPSY KIDNEY ABNORMAL [None]
  - INJURY [None]
  - NEPHROPATHY [None]
  - RENAL FAILURE [None]
  - RENAL TUBULAR DISORDER [None]
  - SYNCOPE [None]
